FAERS Safety Report 9244827 (Version 2)
Quarter: 2013Q2

REPORT INFORMATION
  Report Type: Spontaneous
  Country: JP (occurrence: JP)
  Receive Date: 20130422
  Receipt Date: 20130619
  Transmission Date: 20140414
  Serious: Yes (Other)
  Sender: FDA-Public Use
  Company Number: PHHY2013JP037758

PATIENT
  Sex: Male

DRUGS (2)
  1. EXELON PATCH [Suspect]
     Indication: DEMENTIA
     Dosage: UNK UKN, UNK
     Route: 062
  2. SUNRYTHM [Suspect]
     Dosage: UNK UKN, UNK
     Route: 048

REACTIONS (2)
  - Sick sinus syndrome [Unknown]
  - Loss of consciousness [Unknown]
